FAERS Safety Report 14788721 (Version 2)
Quarter: 2018Q2

REPORT INFORMATION
  Report Type: Spontaneous
  Country: US (occurrence: US)
  Receive Date: 20180423
  Receipt Date: 20180514
  Transmission Date: 20180711
  Serious: Yes (Other)
  Sender: FDA-Public Use
  Company Number: US-JNJFOC-20180414850

PATIENT
  Age: 16 Year
  Sex: Male

DRUGS (37)
  1. RISPERDAL [Suspect]
     Active Substance: RISPERIDONE
     Indication: PSYCHOTIC DISORDER
     Route: 048
     Dates: start: 20061023, end: 20061128
  2. RISPERDAL [Suspect]
     Active Substance: RISPERIDONE
     Indication: HYPERSEXUALITY
     Route: 048
     Dates: start: 20061205, end: 20061212
  3. INVEGA [Suspect]
     Active Substance: PALIPERIDONE
     Indication: AGGRESSION
     Route: 048
     Dates: start: 20070503
  4. INVEGA [Suspect]
     Active Substance: PALIPERIDONE
     Indication: MOOD SWINGS
     Route: 048
     Dates: start: 20070619, end: 20070621
  5. INVEGA [Suspect]
     Active Substance: PALIPERIDONE
     Indication: MOOD SWINGS
     Route: 048
     Dates: start: 20070621, end: 20070705
  6. INVEGA [Suspect]
     Active Substance: PALIPERIDONE
     Indication: THINKING ABNORMAL
     Route: 048
     Dates: start: 20070621, end: 20070705
  7. RISPERDAL [Suspect]
     Active Substance: RISPERIDONE
     Indication: HYPERSEXUALITY
     Route: 048
     Dates: start: 20061021, end: 20061023
  8. RISPERDAL [Suspect]
     Active Substance: RISPERIDONE
     Indication: ATTENTION DEFICIT/HYPERACTIVITY DISORDER
     Route: 048
     Dates: start: 20061023, end: 20061128
  9. RISPERDAL [Suspect]
     Active Substance: RISPERIDONE
     Indication: ATTENTION DEFICIT/HYPERACTIVITY DISORDER
     Route: 048
     Dates: start: 20061205, end: 20061212
  10. RISPERDAL [Suspect]
     Active Substance: RISPERIDONE
     Indication: PSYCHOTIC DISORDER
     Route: 048
     Dates: start: 20061228, end: 20070101
  11. INVEGA [Suspect]
     Active Substance: PALIPERIDONE
     Indication: AGITATION
     Route: 048
     Dates: start: 20070503
  12. INVEGA [Suspect]
     Active Substance: PALIPERIDONE
     Indication: AGGRESSION
     Route: 048
     Dates: start: 20070621, end: 20070705
  13. INVEGA [Suspect]
     Active Substance: PALIPERIDONE
     Indication: THINKING ABNORMAL
     Route: 048
     Dates: start: 20070705, end: 20070723
  14. RISPERDAL [Suspect]
     Active Substance: RISPERIDONE
     Indication: ATTENTION DEFICIT/HYPERACTIVITY DISORDER
     Route: 048
     Dates: start: 20030512, end: 20040330
  15. RISPERDAL [Suspect]
     Active Substance: RISPERIDONE
     Indication: PSYCHOTIC DISORDER
     Route: 048
     Dates: start: 20061021, end: 20061023
  16. INVEGA [Suspect]
     Active Substance: PALIPERIDONE
     Indication: AGITATION
     Route: 048
     Dates: start: 20070619, end: 20070621
  17. INVEGA [Suspect]
     Active Substance: PALIPERIDONE
     Indication: AGITATION
     Route: 048
     Dates: start: 20070705, end: 20070723
  18. INVEGA [Suspect]
     Active Substance: PALIPERIDONE
     Indication: MOOD SWINGS
     Route: 048
     Dates: start: 20070705, end: 20070723
  19. RISPERDAL [Suspect]
     Active Substance: RISPERIDONE
     Indication: ATTENTION DEFICIT/HYPERACTIVITY DISORDER
     Route: 048
     Dates: start: 20030223, end: 20030512
  20. RISPERDAL [Suspect]
     Active Substance: RISPERIDONE
     Indication: HYPERSEXUALITY
     Route: 048
     Dates: start: 20030223, end: 20030512
  21. RISPERDAL [Suspect]
     Active Substance: RISPERIDONE
     Indication: ATTENTION DEFICIT/HYPERACTIVITY DISORDER
     Route: 048
     Dates: start: 20061113, end: 20061205
  22. INVEGA [Suspect]
     Active Substance: PALIPERIDONE
     Indication: THINKING ABNORMAL
     Route: 048
     Dates: start: 20070503
  23. INVEGA [Suspect]
     Active Substance: PALIPERIDONE
     Indication: AGGRESSION
     Route: 048
     Dates: start: 20070619, end: 20070621
  24. RISPERDAL [Suspect]
     Active Substance: RISPERIDONE
     Indication: PSYCHOTIC DISORDER
     Route: 048
     Dates: start: 20030512, end: 20040330
  25. INVEGA [Suspect]
     Active Substance: PALIPERIDONE
     Indication: AGGRESSION
     Route: 048
     Dates: start: 20070705, end: 20070723
  26. RISPERDAL [Suspect]
     Active Substance: RISPERIDONE
     Indication: ATTENTION DEFICIT/HYPERACTIVITY DISORDER
     Route: 048
     Dates: start: 20061021, end: 20061023
  27. RISPERDAL [Suspect]
     Active Substance: RISPERIDONE
     Indication: PSYCHOTIC DISORDER
     Route: 048
     Dates: start: 20061113, end: 20061205
  28. RISPERDAL [Suspect]
     Active Substance: RISPERIDONE
     Indication: HYPERSEXUALITY
     Route: 048
     Dates: start: 20061113, end: 20061205
  29. RISPERDAL [Suspect]
     Active Substance: RISPERIDONE
     Indication: HYPERSEXUALITY
     Route: 048
     Dates: start: 20061228, end: 20070101
  30. RISPERDAL [Suspect]
     Active Substance: RISPERIDONE
     Indication: PSYCHOTIC DISORDER
     Route: 048
     Dates: start: 20030223, end: 20030512
  31. RISPERDAL [Suspect]
     Active Substance: RISPERIDONE
     Indication: HYPERSEXUALITY
     Route: 048
     Dates: start: 20030512, end: 20040330
  32. RISPERDAL [Suspect]
     Active Substance: RISPERIDONE
     Indication: HYPERSEXUALITY
     Route: 048
     Dates: start: 20061023, end: 20061128
  33. RISPERDAL [Suspect]
     Active Substance: RISPERIDONE
     Indication: PSYCHOTIC DISORDER
     Route: 048
     Dates: start: 20061205, end: 20061212
  34. RISPERDAL [Suspect]
     Active Substance: RISPERIDONE
     Indication: ATTENTION DEFICIT/HYPERACTIVITY DISORDER
     Route: 048
     Dates: start: 20061228, end: 20070101
  35. INVEGA [Suspect]
     Active Substance: PALIPERIDONE
     Indication: MOOD SWINGS
     Route: 048
     Dates: start: 20070503
  36. INVEGA [Suspect]
     Active Substance: PALIPERIDONE
     Indication: THINKING ABNORMAL
     Route: 048
     Dates: start: 20070619, end: 20070621
  37. INVEGA [Suspect]
     Active Substance: PALIPERIDONE
     Indication: AGITATION
     Route: 048
     Dates: start: 20070621, end: 20070705

REACTIONS (7)
  - Off label use [Unknown]
  - Gynaecomastia [Unknown]
  - Overweight [Unknown]
  - Blood prolactin increased [Unknown]
  - Product use in unapproved indication [Unknown]
  - Depression [Unknown]
  - Emotional distress [Unknown]

NARRATIVE: CASE EVENT DATE: 2003
